FAERS Safety Report 7083221-1 (Version None)
Quarter: 2010Q4

REPORT INFORMATION
  Report Type: 
  Country: None (occurrence: None)
  Receive Date: 20101104
  Receipt Date: 20100324
  Transmission Date: 20110411
  Serious: Yes (Hospitalization, Other)
  Sender: FDA-Public Use
  Company Number: US-BAYER-200928582NA

PATIENT
  Age: 41 Year
  Sex: Female
  Weight: 73 kg

DRUGS (9)
  1. YAZ [Suspect]
     Indication: CONTRACEPTION
     Route: 048
     Dates: start: 20080601, end: 20081001
  2. YASMIN [Suspect]
     Indication: CONTRACEPTION
     Dosage: TOTAL DAILY DOSE: 1 DF
     Route: 048
  3. CLONAZEPAM [Concomitant]
     Indication: BIPOLAR DISORDER
     Dates: start: 20060101
  4. TRAZODONE [Concomitant]
     Indication: BIPOLAR DISORDER
     Dates: start: 20060101
  5. RISPERDAL [Concomitant]
     Dates: start: 20080401
  6. LAMOTRIGINE [Concomitant]
     Dates: start: 20080701
  7. NAPROXEN [Concomitant]
     Dates: start: 20080901
  8. WARFARIN [Concomitant]
     Dates: start: 20081001
  9. LAMICTAL [Concomitant]
     Dates: start: 20080401, end: 20090101

REACTIONS (6)
  - ATELECTASIS [None]
  - CHEST PAIN [None]
  - DYSPNOEA [None]
  - MUSCLE SPASMS [None]
  - PAIN [None]
  - PULMONARY EMBOLISM [None]
